FAERS Safety Report 5361956-6 (Version None)
Quarter: 2007Q2

REPORT INFORMATION
  Report Type: 
  Country: None (occurrence: None)
  Receive Date: 20070619
  Receipt Date: 20070604
  Transmission Date: 20071010
  Serious: Yes (Other)
  Sender: FDA-Public Use
  Company Number: US-JNJFOC-20070601307

PATIENT
  Sex: Male
  Weight: 74.84 kg

DRUGS (3)
  1. LEVAQUIN [Suspect]
     Indication: KIDNEY INFECTION
     Route: 042
  2. LEVAQUIN [Suspect]
     Route: 048
  3. DILAUDID [Concomitant]
     Indication: PAIN
     Route: 042

REACTIONS (4)
  - HYPOAESTHESIA [None]
  - PARAESTHESIA [None]
  - SCOTOMA [None]
  - VISUAL ACUITY REDUCED [None]
